FAERS Safety Report 4589497-4 (Version None)
Quarter: 2005Q1

REPORT INFORMATION
  Report Type: 
  Country: None (occurrence: None)
  Receive Date: 20050216
  Receipt Date: 20050203
  Transmission Date: 20050727
  Serious: Yes (Hospitalization)
  Sender: FDA-Public Use
  Company Number: 2005024919

PATIENT
  Sex: Male

DRUGS (1)
  1. CELEBREX [Suspect]
     Indication: BACK PAIN
     Dosage: (200 MG), ORAL
     Route: 048
     Dates: start: 20050122, end: 20050125

REACTIONS (3)
  - BLISTER [None]
  - CONJUNCTIVAL DISORDER [None]
  - OCULAR HYPERAEMIA [None]
